FAERS Safety Report 16081831 (Version 4)
Quarter: 2019Q3

REPORT INFORMATION
  Report Type: Spontaneous
  Country: US (occurrence: US)
  Receive Date: 20190316
  Receipt Date: 20190919
  Transmission Date: 20191004
  Serious: Yes (Other)
  Sender: FDA-Public Use
  Company Number: US-TEVA-2019-US-1022457

PATIENT
  Sex: Female

DRUGS (5)
  1. AUSTEDO [Suspect]
     Active Substance: DEUTETRABENAZINE
     Dosage: 12 MILLIGRAM DAILY; RESTART TREATMENT, TITRATING PERIOD
     Dates: start: 20190308
  2. AUSTEDO [Suspect]
     Active Substance: DEUTETRABENAZINE
     Dosage: 24 MILLIGRAM DAILY; DOSE INCREASED TO 12 MG TWICE DAILY
  3. AUSTEDO [Suspect]
     Active Substance: DEUTETRABENAZINE
     Indication: TARDIVE DYSKINESIA
     Dosage: PATIENT ON AUSTEDO ABOUT 6 MONTHS AGO
     Route: 065
  4. AUSTEDO [Suspect]
     Active Substance: DEUTETRABENAZINE
     Dosage: 6 MILLIGRAM DAILY; CUT HER 6MG TABLETS IN HALF AND TAKEN ONE HALF IN THE MORNING AND THE OTHER HALF
  5. AUSTEDO [Suspect]
     Active Substance: DEUTETRABENAZINE
     Dosage: 18 MILLIGRAM DAILY;

REACTIONS (14)
  - Product use issue [Unknown]
  - Dysgraphia [Unknown]
  - Drug ineffective [Unknown]
  - Walking aid user [Unknown]
  - Fall [Unknown]
  - Tremor [Unknown]
  - Panic attack [Not Recovered/Not Resolved]
  - Dizziness [Unknown]
  - Balance disorder [Unknown]
  - Dyskinesia [Unknown]
  - Wrong technique in product usage process [Unknown]
  - Gait inability [Unknown]
  - Reading disorder [Unknown]
  - Therapeutic product effect increased [Unknown]
